FAERS Safety Report 4533165-1 (Version None)
Quarter: 2004Q4

REPORT INFORMATION
  Report Type: 
  Country: None (occurrence: None)
  Receive Date: 20041221
  Receipt Date: 20041216
  Transmission Date: 20050328
  Serious: Yes (Other)
  Sender: FDA-Public Use
  Company Number: GB-RB-1180-2004

PATIENT
  Age: 35 Year
  Sex: Female

DRUGS (2)
  1. BUPRENORPHINE HCL [Suspect]
     Indication: DRUG WITHDRAWAL SYNDROME
     Route: 060
     Dates: start: 20041115, end: 20041115
  2. METHADONE [Concomitant]
     Indication: DRUG DEPENDENCE
     Route: 048
     Dates: end: 20041113

REACTIONS (3)
  - ANXIETY [None]
  - HALLUCINATIONS, MIXED [None]
  - PARANOIA [None]
